FAERS Safety Report 14596218 (Version 3)
Quarter: 2022Q1

REPORT INFORMATION
  Report Type: Spontaneous
  Country: PL (occurrence: PL)
  Receive Date: 20180303
  Receipt Date: 20220318
  Transmission Date: 20220423
  Serious: Yes (Other)
  Sender: FDA-Public Use
  Company Number: PL-AUROBINDO-AUR-APL-2018-010957

PATIENT
  Age: 40 Year
  Sex: Female

DRUGS (5)
  1. LAMOTRIGINE [Suspect]
     Active Substance: LAMOTRIGINE
     Indication: Product used for unknown indication
     Dosage: UNK
     Route: 065
  2. LEVETIRACETAM [Suspect]
     Active Substance: LEVETIRACETAM
     Indication: Product used for unknown indication
     Dosage: 1750 MILLIGRAM, ONCE A DAY
     Route: 065
  3. CARBAMAZEPINE [Suspect]
     Active Substance: CARBAMAZEPINE
     Indication: Generalised tonic-clonic seizure
     Dosage: UNK
     Route: 065
  4. OXCARBAZEPINE [Suspect]
     Active Substance: OXCARBAZEPINE
     Indication: Product used for unknown indication
     Dosage: 18000 MILLIGRAM, ONCE A DAY
     Route: 065
  5. OXCARBAZEPINE [Suspect]
     Active Substance: OXCARBAZEPINE
     Dosage: 1200 MILLIGRAM, ONCE A DAY
     Route: 065

REACTIONS (7)
  - Central nervous system lesion [Recovered/Resolved]
  - Somnolence [Recovered/Resolved]
  - Dyskinesia [Recovered/Resolved]
  - Middle insomnia [Recovering/Resolving]
  - Normal newborn [Recovered/Resolved]
  - Therapeutic product effect incomplete [Unknown]
  - Exposure during pregnancy [Recovered/Resolved]
